FAERS Safety Report 7434865-6 (Version None)
Quarter: 2011Q2

REPORT INFORMATION
  Report Type: 
  Country: None (occurrence: None)
  Receive Date: 20110425
  Receipt Date: 20110414
  Transmission Date: 20111010
  Serious: Yes (Hospitalization, Other)
  Sender: FDA-Public Use
  Company Number: JP-ROCHE-729998

PATIENT
  Age: 77 Year
  Sex: Female

DRUGS (5)
  1. AVASTIN [Suspect]
     Indication: RECTAL CANCER RECURRENT
     Dosage: NOTE: DOSAGE IS UNCERTAIN.
     Route: 041
     Dates: start: 20090101
  2. ELPLAT [Concomitant]
     Dosage: NOTE: DOSAGE IS UNCERTAIN.
     Route: 041
  3. LEVOFOLINATE [Concomitant]
     Dosage: NOTE: DOSAGE IS UNCERTAIN.
     Route: 041
  4. FLUOROURACIL [Concomitant]
     Dosage: NOTE: DOSAGE IS UNCERTAIN.
     Route: 040
  5. FLUOROURACIL [Concomitant]
     Dosage: ROUTE: INTRAVENOUS DRIP
     Route: 040

REACTIONS (3)
  - EYE INFECTION FUNGAL [None]
  - VISUAL IMPAIRMENT [None]
  - ERYTHEMA [None]
